FAERS Safety Report 8740345 (Version 5)
Quarter: 2014Q4

REPORT INFORMATION
  Report Type: Spontaneous
  Country: US (occurrence: US)
  Receive Date: 20120823
  Receipt Date: 20141014
  Transmission Date: 20150529
  Serious: No
  Sender: FDA-Public Use
  Company Number: US-009507513-1208USA004058

PATIENT
  Sex: Male

DRUGS (2)
  1. FINASTERIDE. [Suspect]
     Active Substance: FINASTERIDE
     Indication: ALOPECIA
     Dosage: 5 MG, QD
     Route: 048
     Dates: start: 201008, end: 20111003
  2. PROPECIA [Suspect]
     Active Substance: FINASTERIDE
     Indication: ALOPECIA
     Dosage: 1 MG, QD
     Route: 048
     Dates: start: 20090609, end: 2010

REACTIONS (9)
  - Depression [Unknown]
  - Blood testosterone decreased [Unknown]
  - Drug intolerance [Unknown]
  - Cognitive disorder [Not Recovered/Not Resolved]
  - Weight increased [Unknown]
  - Sexual dysfunction [Not Recovered/Not Resolved]
  - Hypogonadism [Unknown]
  - Erectile dysfunction [Unknown]
  - Fatigue [Unknown]

NARRATIVE: CASE EVENT DATE: 2009
